FAERS Safety Report 13943827 (Version 1)
Quarter: 2017Q3

REPORT INFORMATION
  Report Type: Report from Study
  Country: US (occurrence: US)
  Receive Date: 20170907
  Receipt Date: 20170907
  Transmission Date: 20171128
  Serious: No
  Sender: FDA-Public Use
  Company Number: PHEH2017US028694

PATIENT
  Sex: Male
  Weight: 34.3 kg

DRUGS (1)
  1. OMNITROPE [Suspect]
     Active Substance: SOMATROPIN
     Indication: HYPOPITUITARISM
     Dosage: 1.5 MG, QD X 7 DAYS/WEEK
     Route: 058
     Dates: start: 201708

REACTIONS (1)
  - Device malfunction [Not Recovered/Not Resolved]
